FAERS Safety Report 12874756 (Version 1)
Quarter: 2016Q4

REPORT INFORMATION
  Report Type: Report from Study
  Country: US (occurrence: US)
  Receive Date: 20161022
  Receipt Date: 20161022
  Transmission Date: 20170207
  Serious: No
  Sender: FDA-Public Use
  Company Number: US-AMGEN-USASL2016143614

PATIENT
  Age: 80 Year
  Sex: Female

DRUGS (1)
  1. ENBREL [Suspect]
     Active Substance: ETANERCEPT
     Indication: PSORIASIS
     Dosage: 50 MG, 2 TIMES/WK
     Route: 065

REACTIONS (8)
  - Eyelid oedema [Unknown]
  - Eye infection [Unknown]
  - Skin haemorrhage [Unknown]
  - Rash generalised [Unknown]
  - Lacrimation increased [Unknown]
  - Rash pruritic [Unknown]
  - Scratch [Unknown]
  - Vision blurred [Unknown]

NARRATIVE: CASE EVENT DATE: 201608
